FAERS Safety Report 15932269 (Version 2)
Quarter: 2019Q1

REPORT INFORMATION
  Report Type: Spontaneous
  Country: US (occurrence: US)
  Receive Date: 20190207
  Receipt Date: 20190327
  Transmission Date: 20190417
  Serious: No
  Sender: FDA-Public Use
  Company Number: US-PFIZER INC-2019054334

PATIENT
  Age: 75 Year
  Sex: Female

DRUGS (1)
  1. AZITHROMYCIN ANHYDROUS. [Suspect]
     Active Substance: AZITHROMYCIN ANHYDROUS
     Dosage: 500 MG, 1X/DAY [500MG OR CC ; NO: 5 ; SIG: 1 PO QD (ONCE A DAY) X 5D]
     Route: 048

REACTIONS (1)
  - Drug hypersensitivity [Unknown]
